FAERS Safety Report 4367745-3 (Version None)
Quarter: 2004Q2

REPORT INFORMATION
  Report Type: 
  Country: None (occurrence: None)
  Receive Date: 20040527
  Receipt Date: 20030911
  Transmission Date: 20050107
  Serious: Yes (Other)
  Sender: FDA-Public Use
  Company Number: 346923

PATIENT
  Age: 59 Year
  Sex: Female
  Weight: 81.2 kg

DRUGS (1)
  1. LARIAM [Suspect]
     Indication: MALARIA PROPHYLAXIS
     Dosage: ORAL
     Route: 048
     Dates: start: 20020615

REACTIONS (8)
  - ADVERSE EVENT [None]
  - ANOREXIA [None]
  - CHILLS [None]
  - DEPRESSION [None]
  - FATIGUE [None]
  - HYPERHIDROSIS [None]
  - SUICIDAL IDEATION [None]
  - WEIGHT DECREASED [None]
